FAERS Safety Report 18046412 (Version 3)
Quarter: 2020Q3

REPORT INFORMATION
  Report Type: Spontaneous
  Country: US (occurrence: US)
  Receive Date: 20200720
  Receipt Date: 20200722
  Transmission Date: 20201103
  Serious: No
  Sender: FDA-Public Use
  Company Number: US-PFIZER INC-2020276017

PATIENT
  Age: 30 Year
  Sex: Female
  Weight: 63.5 kg

DRUGS (5)
  1. MAXALT [Concomitant]
     Active Substance: RIZATRIPTAN BENZOATE
     Indication: MIGRAINE
     Dosage: UNK
  2. LYRICA [Suspect]
     Active Substance: PREGABALIN
     Indication: FIBROMYALGIA
     Dosage: 75 MG, 2X/DAY (75MG CAPSULES, 1 CAPSULE IN THE MORNING AND 1 CAPSULE AT NIGHT BY MOUTH)
     Route: 048
     Dates: start: 20200717
  3. DULOXETINE. [Concomitant]
     Active Substance: DULOXETINE
     Indication: DEPRESSION
     Dosage: 120 MG, 1X/DAY (60 MG CAPSULES, 2 CAPSULES IN THE MORNING)
     Route: 048
     Dates: start: 202003
  4. DULOXETINE. [Concomitant]
     Active Substance: DULOXETINE
     Indication: PAIN
  5. IBUPROFEN. [Concomitant]
     Active Substance: IBUPROFEN
     Indication: FIBROMYALGIA
     Dosage: 600 MG, AS NEEDED (1 OR 2 TABLETS PER DAY)
     Route: 048

REACTIONS (4)
  - Somnolence [Recovering/Resolving]
  - Intentional product misuse [Unknown]
  - Fatigue [Recovering/Resolving]
  - Diplopia [Recovered/Resolved]

NARRATIVE: CASE EVENT DATE: 20200718
